FAERS Safety Report 25634199 (Version 4)
Quarter: 2025Q4

REPORT INFORMATION
  Report Type: Spontaneous
  Country: JP (occurrence: JP)
  Receive Date: 20250801
  Receipt Date: 20251107
  Transmission Date: 20260117
  Serious: Yes (Death, Hospitalization)
  Sender: MERCK SHARP & DOHME LLC
  Company Number: JP-009507513-2313176

PATIENT
  Age: 56 Year
  Sex: Female

DRUGS (4)
  1. KEYTRUDA [Suspect]
     Active Substance: PEMBROLIZUMAB
     Indication: Cervix carcinoma recurrent
     Dosage: STRENGTH: 100 MG
     Route: 041
  2. TAXOTERE [Concomitant]
     Active Substance: DOCETAXEL
     Indication: Cervix carcinoma recurrent
  3. CYCLOPHOSPHAMIDE [Concomitant]
     Active Substance: CYCLOPHOSPHAMIDE
     Indication: Cervix carcinoma recurrent
  4. BEVACIZUMAB [Concomitant]
     Active Substance: BEVACIZUMAB
     Indication: Cervix carcinoma recurrent

REACTIONS (3)
  - Large intestine perforation [Fatal]
  - Immune-mediated enterocolitis [Fatal]
  - Suture rupture [Unknown]

NARRATIVE: CASE EVENT DATE: 20240101
